FAERS Safety Report 9068795 (Version 1)
Quarter: 2013Q1

REPORT INFORMATION
  Report Type: Spontaneous
  Country: US (occurrence: US)
  Receive Date: 20130128
  Receipt Date: 20130128
  Transmission Date: 20140127
  Serious: Yes (Hospitalization, Disabling)
  Sender: FDA-Public Use
  Company Number: US-ACTELION-A-NJ2013-78202

PATIENT
  Age: 61 Year
  Sex: Female

DRUGS (9)
  1. TRACLEER [Suspect]
     Indication: PULMONARY ARTERIAL HYPERTENSION
     Dosage: 125 MG, BID
     Route: 048
     Dates: start: 2010
  2. ADCIRCA [Concomitant]
     Dosage: 40 MG, QD
     Dates: start: 2010
  3. CELLCEPT [Concomitant]
     Dosage: 500 MG, TID
  4. PLAQUENIL [Concomitant]
     Dosage: 200 MG, BID
  5. PREDNISONE [Concomitant]
     Dosage: 5 MG, BID
     Dates: end: 201211
  6. PREDNISONE [Concomitant]
     Dosage: 10 MG, BID
     Dates: start: 201211
  7. ZOLOFT [Concomitant]
     Dosage: 200 MG, QD
     Dates: start: 2007
  8. XANAX [Concomitant]
     Dosage: 0.5 MG, IN EVENING
  9. OXYGEN [Concomitant]

REACTIONS (11)
  - Walking disability [Recovered/Resolved]
  - Endotracheal intubation [Recovered/Resolved]
  - Lung infection [Recovered/Resolved]
  - Influenza [Recovered/Resolved]
  - Tachycardia [Recovered/Resolved]
  - Memory impairment [Not Recovered/Not Resolved]
  - Major depression [Recovering/Resolving]
  - Concomitant disease aggravated [Recovering/Resolving]
  - Pulmonary function test decreased [Not Recovered/Not Resolved]
  - Gastrooesophageal reflux disease [Not Recovered/Not Resolved]
  - Dyspnoea [Recovering/Resolving]
